FAERS Safety Report 22703546 (Version 2)
Quarter: 2023Q4

REPORT INFORMATION
  Report Type: Spontaneous
  Country: BR (occurrence: BR)
  Receive Date: 20230713
  Receipt Date: 20231105
  Transmission Date: 20240110
  Serious: Yes (Other)
  Sender: FDA-Public Use
  Company Number: BR-CELLTRION INC.-2023BR013975

PATIENT

DRUGS (2)
  1. INFLIXIMAB [Suspect]
     Active Substance: INFLIXIMAB
     Indication: Ankylosing spondylitis
     Dosage: UNK
     Route: 042
     Dates: start: 20230508
  2. INFLIXIMAB [Suspect]
     Active Substance: INFLIXIMAB
     Dosage: 4 AMPOULES EVERY 2 MONTHS
     Route: 042

REACTIONS (6)
  - Acute respiratory distress syndrome [Unknown]
  - Pulmonary fibrosis [Unknown]
  - Tuberculosis [Unknown]
  - Oropharyngeal pain [Unknown]
  - Intentional dose omission [Unknown]
  - Contraindicated product administered [Unknown]

NARRATIVE: CASE EVENT DATE: 20230629
